FAERS Safety Report 19999181 (Version 1)
Quarter: 2021Q4

REPORT INFORMATION
  Report Type: Report from Study
  Country: US (occurrence: US)
  Receive Date: 20211027
  Receipt Date: 20211027
  Transmission Date: 20220304
  Serious: Yes (Other)
  Sender: FDA-Public Use
  Company Number: US-NOVARTISPH-NVSC2021US236189

PATIENT
  Sex: Female

DRUGS (1)
  1. ENTRESTO [Suspect]
     Active Substance: SACUBITRIL\VALSARTAN
     Indication: Cardiac failure
     Dosage: UNK
     Route: 048

REACTIONS (7)
  - Lung neoplasm malignant [Unknown]
  - Diabetes mellitus [Unknown]
  - Myocardial infarction [Unknown]
  - Feeling abnormal [Unknown]
  - Cough [Unknown]
  - Fatigue [Unknown]
  - Frustration tolerance decreased [Unknown]
